FAERS Safety Report 20256684 (Version 3)
Quarter: 2022Q1

REPORT INFORMATION
  Report Type: Spontaneous
  Country: US (occurrence: None)
  Receive Date: 20211230
  Receipt Date: 20220202
  Transmission Date: 20220423
  Serious: Yes (Hospitalization)
  Sender: FDA-Public Use
  Company Number: 2021A896073

PATIENT
  Age: 882 Month
  Sex: Female
  Weight: 136.1 kg

DRUGS (1)
  1. BYDUREON BCISE [Suspect]
     Active Substance: EXENATIDE
     Indication: Diabetes mellitus
     Route: 058

REACTIONS (9)
  - Pneumonia [Recovering/Resolving]
  - Pharyngitis streptococcal [Unknown]
  - Bronchitis [Unknown]
  - Cough [Unknown]
  - Hypersomnia [Not Recovered/Not Resolved]
  - Memory impairment [Unknown]
  - Incorrect dose administered by device [Unknown]
  - Device leakage [Unknown]
  - Needle issue [Unknown]

NARRATIVE: CASE EVENT DATE: 20211101
